FAERS Safety Report 6865914-1 (Version None)
Quarter: 2010Q3

REPORT INFORMATION
  Report Type: 
  Country: None (occurrence: None)
  Receive Date: 20100719
  Receipt Date: 20100709
  Transmission Date: 20110219
  Serious: Yes (Hospitalization)
  Sender: FDA-Public Use
  Company Number: RB-12926-2010

PATIENT
  Sex: Male

DRUGS (3)
  1. SUBOXONE [Suspect]
     Indication: DRUG DEPENDENCE
     Dosage: (8 MG QD SUBLINGUAL)
     Route: 060
     Dates: start: 20100703, end: 20100703
  2. SUBOXONE [Suspect]
     Indication: PAIN MANAGEMENT
     Dosage: (8 MG QD SUBLINGUAL)
     Route: 060
     Dates: start: 20100703, end: 20100703
  3. FENTANYL [Suspect]
     Indication: PAIN MANAGEMENT
     Dosage: (TRANSDERMAL)
     Route: 062
     Dates: end: 20100702

REACTIONS (5)
  - ANXIETY [None]
  - BLOOD PRESSURE INCREASED [None]
  - HEADACHE [None]
  - MUSCLE SPASMS [None]
  - TREMOR [None]
